FAERS Safety Report 8900566 (Version 3)
Quarter: 2013Q2

REPORT INFORMATION
  Report Type: Spontaneous
  Country: CA (occurrence: CA)
  Receive Date: 20121109
  Receipt Date: 20130403
  Transmission Date: 20140414
  Serious: Yes (Hospitalization, Other)
  Sender: FDA-Public Use
  Company Number: CA-ELI_LILLY_AND_COMPANY-CA201210009440

PATIENT
  Age: 54 Year
  Sex: Female
  Weight: 47.6 kg

DRUGS (21)
  1. FORTEO [Suspect]
     Dosage: 20 UG, QD
     Route: 058
     Dates: start: 20101109, end: 20110726
  2. FORTEO [Suspect]
     Dosage: UNK
     Dates: start: 20110730
  3. FORTEO [Suspect]
     Dosage: UNK
     Dates: start: 201111, end: 20130105
  4. IMIPRAMINE [Concomitant]
     Dosage: 50 MG, 4 QHS
     Dates: start: 20120706
  5. AMITRIPTYLINE [Concomitant]
     Dosage: 50 MG, 1-2 Q HS
     Dates: start: 20120706
  6. ESTRADOT [Concomitant]
     Dosage: 25 UG, DAY PATCH, 2X WEEK
     Route: 062
     Dates: start: 20120706
  7. HYDROCHLOROTHIAZIDE [Concomitant]
     Dosage: 37.5 MG, UNKNOWN
     Dates: start: 20120706
  8. ROBAXIN [Concomitant]
     Dosage: 500 MG, TWO QID PRN
     Dates: start: 20120706
  9. CALCIUM CITRATE [Concomitant]
     Dosage: UNK
  10. MAGNESIUM [Concomitant]
  11. MULTI-VIT [Concomitant]
  12. VITAMIN K2 [Concomitant]
  13. TYLENOL /00020001/ [Concomitant]
  14. ROBAXISAL [Concomitant]
     Dosage: C 1/2UNK, PRN
     Dates: start: 20120706
  15. DICLOFENAC [Concomitant]
     Dosage: UNK UNK, QID
     Route: 061
     Dates: start: 20120706
  16. RANITIDINE [Concomitant]
     Dosage: 300 MG, PRN
     Dates: start: 20120706
  17. TYLENOL WITH CODEIN #3 [Concomitant]
     Dosage: UNK UNK, PRN
     Dates: start: 20120706
  18. DICETEL [Concomitant]
     Dosage: 50MG, ONE TID
     Dates: start: 20120627
  19. ULTRAVATE [Concomitant]
     Dosage: UNK, UNK
     Dates: start: 20120627
  20. FEMHRT [Concomitant]
     Dosage: UNK
     Dates: start: 2003
  21. CALCIUM +VIT D [Concomitant]
     Dosage: UNK
     Dates: start: 1998

REACTIONS (4)
  - Radius fracture [Recovered/Resolved]
  - Fall [Recovered/Resolved]
  - Fracture displacement [Recovered/Resolved]
  - Off label use [Unknown]
